FAERS Safety Report 4362622-6 (Version None)
Quarter: 2004Q2

REPORT INFORMATION
  Report Type: 
  Country: None (occurrence: None)
  Receive Date: 20040520
  Receipt Date: 20040503
  Transmission Date: 20050107
  Serious: No
  Sender: FDA-Public Use
  Company Number: TPA2003A01729

PATIENT
  Age: 67 Year
  Sex: Male

DRUGS (18)
  1. ACTOS [Suspect]
     Indication: DIABETES MELLITUS
     Dosage: PER ORAL
     Route: 048
     Dates: start: 20020601, end: 20030501
  2. GLIPIZIDE [Concomitant]
  3. GLUCOPHAGE (METFORMIN HYDROCHLORIDE) (500 MILLIGRAM) [Concomitant]
  4. MACROBID [Concomitant]
  5. REMERON [Concomitant]
  6. ZOLOFT [Concomitant]
  7. SERTRALINE HCL [Concomitant]
  8. TRAZODONE HCL [Concomitant]
  9. ACETAMINOPHEN [Concomitant]
  10. METOPROLOL (METOPROLOL) (50 MILLIGRAM) [Concomitant]
  11. FUROSEMIDE (FUROSEMIDE) (20 MILLIGRAM) [Concomitant]
  12. LANOXIN (DIGOXIN) (0.25 MILLIGRAM) [Concomitant]
  13. PRINIVIL (LISINOPRIL) (10 MILLIGRAM) [Concomitant]
  14. NTG (GLYCERYL TRINITRATE) [Concomitant]
  15. ATIVAN (LORAZEPAM) (1 MILLIGRAM) [Concomitant]
  16. ASA (ACETYLSALICYCLIC ACID) [Concomitant]
  17. FERROUS SULFATE TAB [Concomitant]
  18. OCULAR PREDNISOLONE (PREDNISOLONE SODIUM PHOSPHATE) [Concomitant]

REACTIONS (9)
  - CORNEAL STRIAE [None]
  - DIPLOPIA [None]
  - EYE HAEMORRHAGE [None]
  - FLUID RETENTION [None]
  - MACULAR OEDEMA [None]
  - MACULOPATHY [None]
  - RETINAL DETACHMENT [None]
  - RETINAL EXUDATES [None]
  - VITRECTOMY [None]
